FAERS Safety Report 25204681 (Version 2)
Quarter: 2025Q3

REPORT INFORMATION
  Report Type: Spontaneous
  Country: JP (occurrence: JP)
  Receive Date: 20250416
  Receipt Date: 20250810
  Transmission Date: 20251020
  Serious: Yes (Other)
  Sender: ALEXION PHARMACEUTICALS
  Company Number: JP-ASTRAZENECA-250035241_032810_P_1

PATIENT
  Sex: Male

DRUGS (1)
  1. BREZTRI [Suspect]
     Active Substance: BUDESONIDE\FORMOTEROL\GLYCOPYRROLATE

REACTIONS (6)
  - Dysphonia [Unknown]
  - Oropharyngeal blistering [Unknown]
  - Oropharyngeal discomfort [Unknown]
  - Leukoplakia oral [Unknown]
  - Emphysema [Unknown]
  - Product complaint [Unknown]

NARRATIVE: CASE EVENT DATE: 20240201
